FAERS Safety Report 19942668 (Version 1)
Quarter: 2021Q4

REPORT INFORMATION
  Report Type: Spontaneous
  Country: GB (occurrence: GB)
  Receive Date: 20211011
  Receipt Date: 20211011
  Transmission Date: 20220303
  Serious: Yes (Other)
  Sender: FDA-Public Use
  Company Number: GB-BIOVITRUM-2014GB0133

PATIENT
  Age: 37 Year
  Sex: Male

DRUGS (1)
  1. ANAKINRA [Suspect]
     Active Substance: ANAKINRA
     Indication: Craniocerebral injury
     Route: 058

REACTIONS (4)
  - Atelectasis [Recovering/Resolving]
  - Obstruction [Recovering/Resolving]
  - Lower respiratory tract infection [Recovering/Resolving]
  - Off label use [Unknown]
